FAERS Safety Report 12861578 (Version 2)
Quarter: 2016Q4

REPORT INFORMATION
  Report Type: Spontaneous
  Country: US (occurrence: US)
  Receive Date: 20161019
  Receipt Date: 20161114
  Transmission Date: 20170207
  Serious: No
  Sender: FDA-Public Use
  Company Number: US-PFIZER INC-2016485205

PATIENT
  Age: 52 Year
  Sex: Female

DRUGS (1)
  1. NEOMYCIN SULFATE. [Suspect]
     Active Substance: NEOMYCIN SULFATE
     Indication: WOUND INFECTION
     Dosage: UNK

REACTIONS (1)
  - Drug hypersensitivity [Unknown]
